FAERS Safety Report 19070849 (Version 1)
Quarter: 2021Q1

REPORT INFORMATION
  Report Type: Spontaneous
  Country: FR (occurrence: FR)
  Receive Date: 20210330
  Receipt Date: 20210330
  Transmission Date: 20210420
  Serious: Yes (Other)
  Sender: FDA-Public Use
  Company Number: FR-AUROBINDO-AUR-APL-2021-012129

PATIENT
  Age: 39 Year
  Sex: Male

DRUGS (1)
  1. ALPRAZOLAM TABLETS [Suspect]
     Active Substance: ALPRAZOLAM
     Indication: PRODUCT USED FOR UNKNOWN INDICATION
     Dosage: 31 BOXES OF 0.25 MG (TABLETS)
     Route: 048
     Dates: start: 202102, end: 20210303

REACTIONS (2)
  - Prescription form tampering [Recovered/Resolved]
  - Drug abuse [Not Recovered/Not Resolved]

NARRATIVE: CASE EVENT DATE: 202102
